FAERS Safety Report 10934660 (Version 1)
Quarter: 2015Q1

REPORT INFORMATION
  Report Type: Spontaneous
  Country: DK (occurrence: DK)
  Receive Date: 20150320
  Receipt Date: 20150320
  Transmission Date: 20150721
  Serious: Yes (Hospitalization)
  Sender: FDA-Public Use
  Company Number: DK-B.I. PHARMACEUTICALS,INC./RIDGEFIELD-2015-BI-14424YA

PATIENT
  Age: 67 Year
  Sex: Male

DRUGS (1)
  1. TAMSULOSINA [Suspect]
     Active Substance: TAMSULOSIN HYDROCHLORIDE
     Indication: PROSTATOMEGALY
     Dosage: 0.8 MG
     Route: 048
     Dates: start: 1998

REACTIONS (8)
  - Self-medication [Unknown]
  - Fall [Unknown]
  - Gait disturbance [Recovered/Resolved]
  - Loss of consciousness [Unknown]
  - Syncope [Unknown]
  - Dizziness [Unknown]
  - Intentional product misuse [Unknown]
  - Haematoma [Unknown]

NARRATIVE: CASE EVENT DATE: 2010
